FAERS Safety Report 21469583 (Version 1)
Quarter: 2022Q4

REPORT INFORMATION
  Report Type: Spontaneous
  Country: CN (occurrence: CN)
  Receive Date: 20221018
  Receipt Date: 20221018
  Transmission Date: 20230113
  Serious: Yes (Other)
  Sender: FDA-Public Use
  Company Number: CN-UCBSA-2022059569

PATIENT
  Age: 2 Month
  Sex: Male

DRUGS (7)
  1. KEPPRA [Suspect]
     Active Substance: LEVETIRACETAM
     Indication: Epilepsy
     Dosage: 10 MILLIGRAM/KILOGRAM, 2X/DAY (BID)
  2. KEPPRA [Suspect]
     Active Substance: LEVETIRACETAM
     Dosage: 20 MILLIGRAM/KILOGRAM, 2X/DAY (AT DAY 3)
  3. KEPPRA [Suspect]
     Active Substance: LEVETIRACETAM
     Dosage: 10 MILLIGRAM/KILOGRAM, 2X/DAY (MAINTENANCE DOSE)
  4. ACTH [Concomitant]
     Active Substance: CORTICOTROPIN
     Indication: Infantile spasms
  5. TOPIRAMATE [Concomitant]
     Active Substance: TOPIRAMATE
     Indication: Epilepsy
  6. CLONAZEPAM [Concomitant]
     Active Substance: CLONAZEPAM
     Indication: Epilepsy
  7. PREDNISONE [Concomitant]
     Active Substance: PREDNISONE
     Indication: Infantile spasms

REACTIONS (4)
  - Infantile spasms [Not Recovered/Not Resolved]
  - Developmental delay [Not Recovered/Not Resolved]
  - Generalised tonic-clonic seizure [Recovered/Resolved]
  - Product use issue [Unknown]
